FAERS Safety Report 17510899 (Version 1)
Quarter: 2020Q1

REPORT INFORMATION
  Report Type: Spontaneous
  Country: US (occurrence: US)
  Receive Date: 20200306
  Receipt Date: 20200306
  Transmission Date: 20200409
  Serious: Yes (Hospitalization, Other)
  Sender: FDA-Public Use
  Company Number: US-SHIRE-US202008388

PATIENT
  Sex: Female
  Weight: 96 kg

DRUGS (10)
  1. PENTASA [Suspect]
     Active Substance: MESALAMINE
     Indication: COLITIS
     Dosage: 2 DOSAGE FORM, 2X/DAY:BID
     Route: 048
     Dates: start: 201808, end: 201909
  2. FOLIC ACID. [Concomitant]
     Active Substance: FOLIC ACID
     Indication: COMPLICATION ASSOCIATED WITH DEVICE
  3. IRON [Concomitant]
     Active Substance: IRON
     Indication: ANAEMIA
  4. VENTOLINE [SALBUTAMOL] [Concomitant]
     Active Substance: ALBUTEROL SULFATE
     Indication: CHRONIC OBSTRUCTIVE PULMONARY DISEASE
  5. MYRBETRIQ [Concomitant]
     Active Substance: MIRABEGRON
     Indication: BLADDER DISORDER
  6. SYMBICORT [Concomitant]
     Active Substance: BUDESONIDE\FORMOTEROL FUMARATE DIHYDRATE
     Indication: CHRONIC OBSTRUCTIVE PULMONARY DISEASE
  7. LIALDA [Suspect]
     Active Substance: MESALAMINE
     Indication: COLITIS
     Dosage: 2 DOSAGE FORM, 2X/DAY:BID
     Route: 048
     Dates: start: 20190915
  8. LIPITOR [Concomitant]
     Active Substance: ATORVASTATIN CALCIUM
     Indication: ANTICOAGULANT THERAPY
  9. CARDIZEM CD [Concomitant]
     Active Substance: DILTIAZEM HYDROCHLORIDE
     Indication: ARRHYTHMIA
  10. ALBUTEROL [SALBUTAMOL] [Concomitant]
     Active Substance: ALBUTEROL
     Indication: CHRONIC OBSTRUCTIVE PULMONARY DISEASE

REACTIONS (7)
  - Drug ineffective [Recovered/Resolved]
  - Cardiac disorder [Unknown]
  - Alopecia [Recovering/Resolving]
  - Colonoscopy [Unknown]
  - Oedema [Recovered/Resolved]
  - Pleural effusion [Recovered/Resolved]
  - Pneumonia [Recovered/Resolved]

NARRATIVE: CASE EVENT DATE: 2018
